FAERS Safety Report 20862622 (Version 1)
Quarter: 2022Q2

REPORT INFORMATION
  Report Type: Spontaneous
  Country: TR (occurrence: TR)
  Receive Date: 20220523
  Receipt Date: 20220523
  Transmission Date: 20220721
  Serious: Yes (Life-Threatening, Other)
  Sender: FDA-Public Use
  Company Number: TR-PFIZER INC-202200715754

PATIENT
  Age: 20 Year
  Sex: Male
  Weight: 55 kg

DRUGS (4)
  1. XANAX [Suspect]
     Active Substance: ALPRAZOLAM
     Indication: Anxiety
     Dosage: 0.25 MG, 1X/DAY
     Route: 048
     Dates: start: 20210606, end: 20220113
  2. XANAX [Suspect]
     Active Substance: ALPRAZOLAM
     Indication: Depression
  3. XANAX [Suspect]
     Active Substance: ALPRAZOLAM
     Indication: Insomnia
  4. XANAX [Suspect]
     Active Substance: ALPRAZOLAM
     Indication: Nervousness

REACTIONS (6)
  - Depersonalisation/derealisation disorder [Recovered/Resolved with Sequelae]
  - Personality disorder [Recovered/Resolved]
  - Withdrawal syndrome [Unknown]
  - Memory impairment [Unknown]
  - Insomnia [Unknown]
  - Product use issue [Unknown]

NARRATIVE: CASE EVENT DATE: 20220115
